FAERS Safety Report 5146117-8 (Version None)
Quarter: 2006Q4

REPORT INFORMATION
  Report Type: 
  Country: None (occurrence: None)
  Receive Date: 20061108
  Receipt Date: 20050928
  Transmission Date: 20070319
  Serious: Yes (Hospitalization, Disabling)
  Sender: FDA-Public Use
  Company Number: US-ROCHE-419570

PATIENT
  Age: 20 Year
  Sex: Male
  Weight: 101.2 kg

DRUGS (2)
  1. ACCUTANE [Suspect]
     Indication: ACNE
     Dosage: ADMINISTERED IN THE EVENINGS.
     Route: 048
     Dates: start: 19960312, end: 19960815
  2. ERYTHROMYCIN [Concomitant]
     Indication: ACNE
     Route: 048
     Dates: start: 19960507, end: 19960703

REACTIONS (34)
  - ANAEMIA [None]
  - ANHEDONIA [None]
  - ANXIETY [None]
  - C-REACTIVE PROTEIN INCREASED [None]
  - COLITIS [None]
  - COLITIS ULCERATIVE [None]
  - CONDITION AGGRAVATED [None]
  - DEPRESSION [None]
  - ECONOMIC PROBLEM [None]
  - GASTROINTESTINAL DISORDER [None]
  - GASTROOESOPHAGEAL REFLUX DISEASE [None]
  - HAEMATOCRIT DECREASED [None]
  - HAEMOGLOBIN DECREASED [None]
  - HERPES SIMPLEX [None]
  - HYPOAESTHESIA [None]
  - HYPOKALAEMIA [None]
  - HYPOMAGNESAEMIA [None]
  - INFLAMMATORY BOWEL DISEASE [None]
  - INJURY [None]
  - INTESTINAL HAEMORRHAGE [None]
  - LEUKOCYTOSIS [None]
  - OSTEOPENIA [None]
  - PAIN [None]
  - PARAESTHESIA [None]
  - PHARYNGITIS [None]
  - PROCTITIS ULCERATIVE [None]
  - RECTAL HAEMORRHAGE [None]
  - RED BLOOD CELL COUNT DECREASED [None]
  - SINUSITIS [None]
  - SPINAL OSTEOARTHRITIS [None]
  - STRESS [None]
  - SYNOVIAL CYST [None]
  - TREATMENT NONCOMPLIANCE [None]
  - WHITE BLOOD CELL COUNT INCREASED [None]
